FAERS Safety Report 14662796 (Version 7)
Quarter: 2018Q2

REPORT INFORMATION
  Report Type: Report from Study
  Country: BE (occurrence: BE)
  Receive Date: 20180321
  Receipt Date: 20180529
  Transmission Date: 20180711
  Serious: Yes (Life-Threatening, Hospitalization)
  Sender: FDA-Public Use
  Company Number: BE-ROCHE-1920995

PATIENT
  Age: 44 Year
  Sex: Female
  Weight: 88 kg

DRUGS (22)
  1. XARELTO [Concomitant]
     Active Substance: RIVAROXABAN
     Route: 048
     Dates: start: 20170719
  2. D-CURE [Concomitant]
     Active Substance: CHOLECALCIFEROL
     Dosage: 25.000 IE/ML
     Route: 048
     Dates: start: 20160304
  3. CETIRIZINE [Concomitant]
     Active Substance: CETIRIZINE HYDROCHLORIDE
     Dosage: ONCE BEFORE INFUSION
     Route: 048
     Dates: start: 20161215, end: 20161215
  4. CETIRIZINE [Concomitant]
     Active Substance: CETIRIZINE HYDROCHLORIDE
     Dosage: ONCE BEFORE INFUSION
     Route: 048
     Dates: start: 20171103, end: 20171103
  5. DAFALGAN FORTE [Concomitant]
     Dosage: ONCE BEFORE INFUSION
     Route: 048
     Dates: start: 20171103, end: 20171103
  6. COLITOFALK [Concomitant]
     Active Substance: MESALAMINE
     Indication: PROPHYLAXIS
     Route: 048
     Dates: start: 20170523, end: 20170718
  7. FRAXODI [Concomitant]
     Active Substance: NADROPARIN CALCIUM
     Route: 058
     Dates: start: 20170420, end: 20170718
  8. PRIORIN [Concomitant]
     Route: 048
     Dates: start: 20171103
  9. OCRELIZUMAB. [Suspect]
     Active Substance: OCRELIZUMAB
     Indication: RELAPSING-REMITTING MULTIPLE SCLEROSIS
     Dosage: LAST DOSE PRIOR TO HEMORRHAGIC SHOCK ONSET 15/DEC/2016, 300 MG?LAST DOSE PRIOR TO HEAVY HEMORRHAGIC
     Route: 042
     Dates: start: 20161201
  10. XARELTO [Concomitant]
     Active Substance: RIVAROXABAN
     Route: 048
     Dates: start: 20180315
  11. CETIRIZINE [Concomitant]
     Active Substance: CETIRIZINE HYDROCHLORIDE
     Dosage: ONCE BEFORE INFUSION
     Route: 048
     Dates: start: 20170522, end: 20170522
  12. DAFALGAN FORTE [Concomitant]
     Dosage: ONCE BEFORE INFUSION
     Route: 048
     Dates: start: 20170522, end: 20170522
  13. XARELTO [Concomitant]
     Active Substance: RIVAROXABAN
     Route: 048
     Dates: start: 2010, end: 20170412
  14. RILATINE [Concomitant]
     Active Substance: METHYLPHENIDATE HYDROCHLORIDE
     Route: 048
     Dates: start: 20150304, end: 20171102
  15. SUMATRIPTAN. [Concomitant]
     Active Substance: SUMATRIPTAN
     Route: 048
     Dates: start: 20161013
  16. CETIRIZINE [Concomitant]
     Active Substance: CETIRIZINE HYDROCHLORIDE
     Dosage: ONCE BEFORE INFUSION
     Route: 048
     Dates: start: 20161201, end: 20161201
  17. DAFALGAN FORTE [Concomitant]
     Dosage: AS NEEDED (PRN)
     Route: 048
     Dates: start: 20161201, end: 20161201
  18. DAFALGAN FORTE [Concomitant]
     Dosage: ONCE BEFORE INFUSION
     Route: 048
     Dates: start: 20161215, end: 20161215
  19. MEDIKINET [Concomitant]
     Active Substance: METHYLPHENIDATE
     Route: 048
     Dates: start: 20171103
  20. METHYLPREDNISOLONE. [Suspect]
     Active Substance: METHYLPREDNISOLONE
     Indication: PREMEDICATION
     Dosage: LAST DOSE PRIOR TO HEMORRHAGIC SHOCK ONSET 15/DEC/2016, 125 MG?LAST DOSE PRIOR TO HEAVY HEMORRHAGIC
     Route: 042
     Dates: start: 20161201
  21. FOLAVIT [Concomitant]
     Active Substance: FOLIC ACID
     Route: 048
     Dates: start: 20150304
  22. IBUPROFEN. [Concomitant]
     Active Substance: IBUPROFEN
     Indication: ARTHRITIS INFECTIVE
     Route: 048
     Dates: start: 20180216, end: 20180220

REACTIONS (2)
  - Crohn^s disease [Recovering/Resolving]
  - Shock haemorrhagic [Recovered/Resolved]

NARRATIVE: CASE EVENT DATE: 20170412
